FAERS Safety Report 11071018 (Version 1)
Quarter: 2015Q2

REPORT INFORMATION
  Report Type: Spontaneous
  Country: FR (occurrence: FR)
  Receive Date: 20150428
  Receipt Date: 20150428
  Transmission Date: 20150821
  Serious: Yes (Hospitalization)
  Sender: FDA-Public Use
  Company Number: FR-ROCHE-1568651

PATIENT
  Age: 86 Year
  Sex: Female

DRUGS (8)
  1. CONTRAMAL [Concomitant]
     Active Substance: TRAMADOL HYDROCHLORIDE
     Route: 065
  2. KAYEXALATE [Concomitant]
     Active Substance: SODIUM POLYSTYRENE SULFONATE
  3. PANTOPRAZOLE [Concomitant]
     Active Substance: PANTOPRAZOLE SODIUM
  4. LYRICA [Concomitant]
     Active Substance: PREGABALIN
     Route: 065
  5. CORTANCYL [Concomitant]
     Active Substance: PREDNISONE
     Route: 065
  6. MINI-SINTROM [Concomitant]
     Active Substance: ACENOCOUMAROL
     Route: 065
  7. LASILIX FAIBLE [Concomitant]
     Active Substance: FUROSEMIDE
     Route: 065
  8. ROCEPHINE [Suspect]
     Active Substance: CEFTRIAXONE SODIUM
     Indication: PRODUCT USED FOR UNKNOWN INDICATION
     Route: 051
     Dates: start: 20150317, end: 20150318

REACTIONS (1)
  - Drug reaction with eosinophilia and systemic symptoms [Recovered/Resolved]

NARRATIVE: CASE EVENT DATE: 20150318
